FAERS Safety Report 7142511-4 (Version None)
Quarter: 2010Q4

REPORT INFORMATION
  Report Type: 
  Country: None (occurrence: None)
  Receive Date: 20101112
  Receipt Date: 20100728
  Transmission Date: 20110411
  Serious: No
  Sender: FDA-Public Use
  Company Number: 1000015399

PATIENT
  Age: 50 Year
  Sex: Female

DRUGS (7)
  1. SAVELLA [Suspect]
     Dosage: 12.5 MG, (12.5 MG, 1 IN 1 D), ORAL; 25 MG (12.5 MG, 2 IN 1 D), ORAL; 50 MG (25 MG, 2 IN 1D), ORAL
     Dates: start: 20100724, end: 20100724
  2. SAVELLA [Suspect]
     Dosage: 12.5 MG, (12.5 MG, 1 IN 1 D), ORAL; 25 MG (12.5 MG, 2 IN 1 D), ORAL; 50 MG (25 MG, 2 IN 1D), ORAL
     Dates: start: 20100725, end: 20100726
  3. SAVELLA [Suspect]
     Dosage: 12.5 MG, (12.5 MG, 1 IN 1 D), ORAL; 25 MG (12.5 MG, 2 IN 1 D), ORAL; 50 MG (25 MG, 2 IN 1D), ORAL
     Dates: start: 20100727
  4. LISINOPRIL [Concomitant]
  5. HYDROCHLOROTHIAZIDE [Concomitant]
  6. GLYBURIDE [Concomitant]
  7. METFORMIN [Concomitant]

REACTIONS (1)
  - HYPERHIDROSIS [None]
